FAERS Safety Report 9001560 (Version 1)
Quarter: 2013Q1

REPORT INFORMATION
  Report Type: Report from Study
  Country: DE (occurrence: DE)
  Receive Date: 20130107
  Receipt Date: 20130107
  Transmission Date: 20140127
  Serious: Yes (Other)
  Sender: FDA-Public Use
  Company Number: DE-TEVA-378973USA

PATIENT
  Age: 59 Year
  Sex: Female

DRUGS (2)
  1. TREANDA [Suspect]
     Indication: B-CELL LYMPHOMA
     Dosage: 32.1429 MILLIGRAM DAILY; CYCLIC
     Route: 042
     Dates: start: 20090616, end: 20091103
  2. RITUXIMAB [Suspect]
     Indication: B-CELL LYMPHOMA
     Dosage: 188.2143 MILLIGRAM DAILY; CYCLICAL
     Route: 042
     Dates: start: 20090615

REACTIONS (1)
  - Hidradenitis [Not Recovered/Not Resolved]
